FAERS Safety Report 24552276 (Version 1)
Quarter: 2024Q4

REPORT INFORMATION
  Report Type: Spontaneous
  Country: US (occurrence: US)
  Receive Date: 20241026
  Receipt Date: 20241026
  Transmission Date: 20250115
  Serious: No
  Sender: GLAXOSMITHKLINE
  Company Number: US-GSK-US2024AMR127686

PATIENT
  Sex: Female

DRUGS (1)
  1. ZEJULA [Suspect]
     Active Substance: NIRAPARIB
     Indication: Ovarian cancer
     Dosage: 100 NG, QD

REACTIONS (5)
  - Illness [Unknown]
  - Nausea [Recovering/Resolving]
  - Vomiting [Unknown]
  - Constipation [Unknown]
  - Hypertension [Unknown]
